FAERS Safety Report 21051752 (Version 1)
Quarter: 2022Q3

REPORT INFORMATION
  Report Type: Spontaneous
  Country: GR (occurrence: GR)
  Receive Date: 20220707
  Receipt Date: 20220707
  Transmission Date: 20221027
  Serious: Yes (Life-Threatening, Hospitalization, Other)
  Sender: FDA-Public Use
  Company Number: GR-SERVIER-S22006868

PATIENT
  Age: 16 Year
  Sex: Female

DRUGS (4)
  1. IVABRADINE [Suspect]
     Active Substance: IVABRADINE
     Indication: Ventricular tachycardia
     Dosage: UNK
     Route: 065
  2. IVABRADINE [Suspect]
     Active Substance: IVABRADINE
     Indication: Off label use
  3. SOTALOL [Concomitant]
     Active Substance: SOTALOL
     Indication: Ventricular tachycardia
     Dosage: UNK
     Route: 065
  4. VERAPAMIL [Concomitant]
     Active Substance: VERAPAMIL HYDROCHLORIDE
     Indication: Ventricular tachycardia
     Dosage: UNK
     Route: 065

REACTIONS (3)
  - Circulatory collapse [Recovered/Resolved]
  - Cardiac arrest [Recovered/Resolved]
  - Product use issue [Recovered/Resolved]

NARRATIVE: CASE EVENT DATE: 20220101
